FAERS Safety Report 19719449 (Version 1)
Quarter: 2021Q3

REPORT INFORMATION
  Report Type: Spontaneous
  Country: US (occurrence: US)
  Receive Date: 20210819
  Receipt Date: 20210819
  Transmission Date: 20211014
  Serious: No
  Sender: FDA-Public Use
  Company Number: None

PATIENT
  Age: 73 Year
  Sex: Male

DRUGS (1)
  1. WARFARIN (WARFAIN NA (EXELAN) 2MG TAB) [Suspect]
     Active Substance: WARFARIN SODIUM
     Indication: ATRIAL FIBRILLATION
     Route: 048

REACTIONS (4)
  - Atrial fibrillation [None]
  - Gastric haemorrhage [None]
  - International normalised ratio increased [None]
  - Anaemia [None]

NARRATIVE: CASE EVENT DATE: 20210517
